FAERS Safety Report 14924911 (Version 1)
Quarter: 2018Q2

REPORT INFORMATION
  Report Type: Spontaneous
  Country: BE (occurrence: BE)
  Receive Date: 20180522
  Receipt Date: 20180522
  Transmission Date: 20180711
  Serious: Yes (Other)
  Sender: FDA-Public Use
  Company Number: BE-ASTRAZENECA-2018SE66160

PATIENT
  Sex: Female

DRUGS (4)
  1. CRESTOR [Suspect]
     Active Substance: ROSUVASTATIN CALCIUM
     Dosage: 20
     Route: 048
  2. TILDIEM [Interacting]
     Active Substance: DILTIAZEM HYDROCHLORIDE
     Dosage: 60 MG
     Route: 065
  3. ITRACONAZOLE. [Interacting]
     Active Substance: ITRACONAZOLE
     Dosage: 100 MG
     Route: 065
  4. AZITHROMYCIN ANHYDROUS. [Interacting]
     Active Substance: AZITHROMYCIN ANHYDROUS
     Dosage: 500 MG
     Route: 065

REACTIONS (3)
  - Asthenia [Unknown]
  - Drug interaction [Unknown]
  - Renal failure [Unknown]
